FAERS Safety Report 8967661 (Version 1)
Quarter: 2012Q4

REPORT INFORMATION
  Report Type: Spontaneous
  Country: US (occurrence: None)
  Receive Date: 20121206
  Receipt Date: 20121206
  Transmission Date: 20130627
  Serious: Yes (Hospitalization, Other)
  Sender: FDA-Public Use
  Company Number: FK201203657

PATIENT
  Age: 76 Year
  Sex: Female

DRUGS (9)
  1. TERBUTALINE INJECTION (MANUFACTURER UNKNOWN) TERBUTALINE SULFATE) (TERBUTALINE SULFATE) [Suspect]
     Indication: DYSPNOEA
     Route: 055
  2. TERBUTALINE INJECTION (MANUFACTURER UNKNOWN) TERBUTALINE SULFATE) (TERBUTALINE SULFATE) [Suspect]
     Indication: WHEEZING
     Route: 055
  3. DEXAMETHASONE [Concomitant]
  4. HEPARIN [Concomitant]
  5. ACETYLSALICYLIC ACID [Concomitant]
  6. IPRATROPIUM BROMIDE [Concomitant]
  7. CORTICOSTEROIDS [Concomitant]
  8. LISINOPRIL [Concomitant]
  9. METOPROLOL [Concomitant]

REACTIONS (2)
  - Stress cardiomyopathy [None]
  - Pulmonary congestion [None]
